FAERS Safety Report 5619471-8 (Version None)
Quarter: 2008Q1

REPORT INFORMATION
  Report Type: 
  Country: None (occurrence: None)
  Receive Date: 20080114
  Receipt Date: 20070105
  Transmission Date: 20080703
  Serious: Yes (Other)
  Sender: FDA-Public Use
  Company Number: FEI2007-0039

PATIENT
  Age: 27 Year
  Sex: Female
  Weight: 66.2252 kg

DRUGS (4)
  1. PARAGARD T 380A [Suspect]
     Indication: CONTRACEPTION
     Dosage: INTRA-UTERINE
     Route: 015
     Dates: start: 20061002, end: 20070105
  2. PRENATAL VITAMINS (PRENATAL VITAMINS) [Concomitant]
  3. ZOLOFT [Concomitant]
  4. WELLBUTRIN [Concomitant]

REACTIONS (1)
  - UTERINE RUPTURE [None]
